FAERS Safety Report 19034986 (Version 1)
Quarter: 2021Q1

REPORT INFORMATION
  Report Type: Spontaneous
  Country: TW (occurrence: TW)
  Receive Date: 20210320
  Receipt Date: 20210320
  Transmission Date: 20210420
  Serious: Yes (Other)
  Sender: FDA-Public Use
  Company Number: TW-ASTRAZENECA-2021A135903

PATIENT
  Age: 53 Year
  Sex: Male

DRUGS (1)
  1. TAGRISSO [Suspect]
     Active Substance: OSIMERTINIB
     Route: 048

REACTIONS (3)
  - Pain [Unknown]
  - Neoplasm progression [Unknown]
  - Radiation pneumonitis [Unknown]
